FAERS Safety Report 8707935 (Version 2)
Quarter: 2012Q4

REPORT INFORMATION
  Report Type: 
  Country: GR (occurrence: GR)
  Receive Date: 20120806
  Receipt Date: 20120906
  Transmission Date: 20130627
  Serious: Yes (Life-Threatening, Hospitalization, Other)
  Sender: FDA-Public Use
  Company Number: GR-009507513-1207GRC012445

PATIENT

DRUGS (1)
  1. PUREGON PEN [Suspect]
     Dosage: UNK

REACTIONS (6)
  - Renal impairment [Recovering/Resolving]
  - Respiratory disorder [Recovering/Resolving]
  - Abortion induced [Recovered/Resolved]
  - Ovarian hyperstimulation syndrome [Recovering/Resolving]
  - Exposure during pregnancy [Recovered/Resolved]
  - Pleural effusion [None]
